FAERS Safety Report 10070409 (Version 1)
Quarter: 2014Q2

REPORT INFORMATION
  Report Type: Spontaneous
  Country: GB (occurrence: None)
  Receive Date: 20140408
  Receipt Date: 20140408
  Transmission Date: 20141212
  Serious: Yes (Other)
  Sender: FDA-Public Use
  Company Number: CL-558-2014

PATIENT
  Age: 52 Year
  Sex: Female

DRUGS (1)
  1. FLUCONAZOLE [Suspect]
     Route: 048
     Dates: start: 20140210, end: 20140224

REACTIONS (1)
  - Bone pain [None]
